FAERS Safety Report 20171479 (Version 3)
Quarter: 2023Q1

REPORT INFORMATION
  Report Type: Spontaneous
  Country: JP (occurrence: JP)
  Receive Date: 20211210
  Receipt Date: 20230329
  Transmission Date: 20230418
  Serious: Yes (Death, Other)
  Sender: FDA-Public Use
  Company Number: JP-JAZZ-2021-JP-021951

PATIENT
  Age: 51 Year
  Sex: Female
  Weight: 56 kg

DRUGS (1)
  1. DEFITELIO [Suspect]
     Active Substance: DEFIBROTIDE SODIUM
     Indication: Venoocclusive liver disease
     Dosage: 25 MILLIGRAM/KILOGRAM, QD, 25 MG/KG/24 HOURS
     Route: 042
     Dates: start: 20211027, end: 20211117

REACTIONS (2)
  - Aspergillus infection [Fatal]
  - Central nervous system fungal infection [Fatal]

NARRATIVE: CASE EVENT DATE: 20211118
